FAERS Safety Report 6104322-8 (Version None)
Quarter: 2009Q1

REPORT INFORMATION
  Report Type: 
  Country: None (occurrence: None)
  Receive Date: 20090302
  Receipt Date: 20090223
  Transmission Date: 20090719
  Serious: Yes (Hospitalization)
  Sender: FDA-Public Use
  Company Number: 2009SP002629

PATIENT
  Age: 52 Year
  Sex: Female

DRUGS (9)
  1. PEG-INTRON [Suspect]
     Indication: HEPATITIS C
     Dosage: ; QW; SC, 120 MCG; QW; SC
     Route: 058
     Dates: start: 20080319, end: 20080506
  2. PEG-INTRON [Suspect]
     Indication: HEPATITIS C
     Dosage: ; QW; SC, 120 MCG; QW; SC
     Route: 058
     Dates: start: 20080507, end: 20090121
  3. RIBAVIRIN [Suspect]
     Indication: HEPATITIS C
     Dosage: ; QD; PO, 1200 MG; QD; PO, 800 MG; QD; PO, 400 MG; QD; PO
     Route: 048
     Dates: start: 20080319, end: 20080729
  4. RIBAVIRIN [Suspect]
     Indication: HEPATITIS C
     Dosage: ; QD; PO, 1200 MG; QD; PO, 800 MG; QD; PO, 400 MG; QD; PO
     Route: 048
     Dates: start: 20080730, end: 20090115
  5. RIBAVIRIN [Suspect]
     Indication: HEPATITIS C
     Dosage: ; QD; PO, 1200 MG; QD; PO, 800 MG; QD; PO, 400 MG; QD; PO
     Route: 048
     Dates: start: 20090116, end: 20090122
  6. RIBAVIRIN [Suspect]
     Indication: HEPATITIS C
     Dosage: ; QD; PO, 1200 MG; QD; PO, 800 MG; QD; PO, 400 MG; QD; PO
     Route: 048
     Dates: start: 20090123
  7. BLINDED ELTROMBOPAG (ELTROMBOPAG) [Suspect]
     Indication: THROMBOCYTOPENIA
     Dosage: ; QD; PO, 100 MG; QD; PO
     Route: 048
     Dates: start: 20080319, end: 20080513
  8. BLINDED ELTROMBOPAG (ELTROMBOPAG) [Suspect]
     Indication: THROMBOCYTOPENIA
     Dosage: ; QD; PO, 100 MG; QD; PO
     Route: 048
     Dates: start: 20080514
  9. ELTROMBOPAG (ELTROMBOPAG) [Suspect]
     Indication: THROMBOCYTOPENIA
     Dosage: 25 MG; QD; PO
     Route: 048
     Dates: start: 20080305, end: 20080319

REACTIONS (4)
  - ASTHMA [None]
  - LUNG CYST [None]
  - SALMONELLA BACTERAEMIA [None]
  - URINARY TRACT INFECTION [None]
